FAERS Safety Report 4308948-3 (Version None)
Quarter: 2004Q1

REPORT INFORMATION
  Report Type: 
  Country: None (occurrence: None)
  Receive Date: 20040227
  Receipt Date: 20040217
  Transmission Date: 20041129
  Serious: Yes (Hospitalization)
  Sender: FDA-Public Use
  Company Number: CA-JNJFOC-20040204150

PATIENT
  Age: 17 Year
  Sex: Male

DRUGS (8)
  1. REMICADE [Suspect]
     Indication: CROHN'S DISEASE
     Dosage: INTRAVENOUS
     Route: 042
     Dates: start: 20030601
  2. REMICADE [Suspect]
     Indication: CROHN'S DISEASE
     Dosage: INTRAVENOUS
     Route: 042
     Dates: start: 20030801
  3. REMICADE [Suspect]
     Indication: CROHN'S DISEASE
     Dosage: INTRAVENOUS
     Route: 042
     Dates: start: 20031101
  4. IMURAN [Concomitant]
  5. VENTOLIN [Concomitant]
  6. CIPRO [Concomitant]
  7. MORPHINE [Concomitant]
  8. PENTASA [Concomitant]

REACTIONS (8)
  - ABASIA [None]
  - ANAL FISSURE [None]
  - ANORECTAL DISORDER [None]
  - CONDITION AGGRAVATED [None]
  - PROCTALGIA [None]
  - PURULENT DISCHARGE [None]
  - RECTAL HAEMORRHAGE [None]
  - SWELLING [None]
